FAERS Safety Report 8602266-0 (Version None)
Quarter: 2012Q3

REPORT INFORMATION
  Report Type: 
  Country: None (occurrence: None)
  Receive Date: 20120817
  Receipt Date: 20120814
  Transmission Date: 20120928
  Serious: Yes (Death)
  Sender: FDA-Public Use
  Company Number: US-B.I. PHARMACEUTICALS,INC./RIDGEFIELD-2012-BP-16136BP

PATIENT
  Sex: Male
  Weight: 80.29 kg

DRUGS (27)
  1. PROSCAR [Concomitant]
     Indication: BENIGN PROSTATIC HYPERPLASIA
     Dosage: 5 MG
  2. OXYGEN [Concomitant]
  3. PRADAXA [Suspect]
     Indication: ATRIAL FIBRILLATION
     Dosage: 150 MG
     Route: 048
     Dates: start: 20110801, end: 20120707
  4. SINEMET [Concomitant]
     Indication: PARKINSON'S DISEASE
     Route: 048
  5. DIGOXIN [Concomitant]
     Indication: HEART RATE ABNORMAL
     Dosage: 0.125 MG
  6. COLACE [Concomitant]
     Dosage: 200 MG
     Route: 048
  7. SYNTHROID [Concomitant]
     Dosage: 0.05 MG
     Route: 048
  8. ASCORBIC ACID [Concomitant]
     Dosage: 1000 MG
  9. TRIAMCINOLONE [Concomitant]
  10. BACTRIM [Concomitant]
     Indication: PROPHYLAXIS URINARY TRACT INFECTION
  11. FUROSEMIDE [Concomitant]
     Indication: OEDEMA PERIPHERAL
  12. NITROGLYCERIN [Concomitant]
  13. CRANBERRY [Concomitant]
  14. METOPROLOL TARTRATE [Concomitant]
     Indication: HEART RATE ABNORMAL
  15. FUROSEMIDE [Concomitant]
     Indication: HYPERTENSION
     Dosage: 10 MG
  16. AMBIEN [Concomitant]
  17. NEURONTIN [Concomitant]
     Indication: NEUROPATHY PERIPHERAL
     Dosage: 600 MG
  18. ARICEPT [Concomitant]
     Indication: DEMENTIA
     Dosage: 10 MG
  19. HYTRIN [Concomitant]
     Indication: BENIGN PROSTATIC HYPERPLASIA
     Dosage: 2 MG
  20. METOPROLOL TARTRATE [Concomitant]
     Indication: HYPERTENSION
     Dosage: 12.5 MG
  21. NAMENDA [Concomitant]
     Indication: DEMENTIA
     Dosage: 20 MG
  22. M.V.I. [Concomitant]
  23. IRON [Concomitant]
     Indication: ANAEMIA
     Dosage: 325 MG
  24. VICODIN [Concomitant]
     Indication: PAIN
  25. CPAP [Concomitant]
  26. KETOCONAZOLE [Concomitant]
     Indication: ONYCHOMYCOSIS
  27. TEMAZEPAM [Concomitant]
     Indication: INSOMNIA
     Dosage: 30 MG

REACTIONS (2)
  - EMBOLIC STROKE [None]
  - ISCHAEMIC STROKE [None]
